FAERS Safety Report 24744594 (Version 2)
Quarter: 2025Q1

REPORT INFORMATION
  Report Type: Spontaneous
  Country: US (occurrence: US)
  Receive Date: 20241217
  Receipt Date: 20250131
  Transmission Date: 20250409
  Serious: No
  Sender: ALEXION PHARMACEUTICALS
  Company Number: US-AstraZeneca-CH-00769128AP

PATIENT

DRUGS (1)
  1. BREZTRI [Suspect]
     Active Substance: BUDESONIDE\FORMOTEROL\GLYCOPYRROLATE
     Indication: Chronic obstructive pulmonary disease
     Route: 065

REACTIONS (7)
  - Product dose omission issue [Unknown]
  - Overdose [Unknown]
  - Incorrect dose administered by product [Unknown]
  - Product use issue [Unknown]
  - Device use issue [Unknown]
  - Product label issue [Unknown]
  - Wrong technique in device usage process [Unknown]
